FAERS Safety Report 5005323-3 (Version None)
Quarter: 2006Q2

REPORT INFORMATION
  Report Type: 
  Country: None (occurrence: None)
  Receive Date: 20060515
  Receipt Date: 20060508
  Transmission Date: 20061013
  Serious: Yes (Other)
  Sender: FDA-Public Use
  Company Number: 2006061273

PATIENT
  Age: 8 Year
  Sex: Female
  Weight: 28.123 kg

DRUGS (3)
  1. SULFASALAZINE [Suspect]
     Indication: COLITIS ULCERATIVE
     Dosage: 1.5 GRAM (750 MG, 2 IN 1 D) ORAL
     Route: 048
     Dates: start: 20010101, end: 20060406
  2. ALLEGRA (FEXOFADINE HYDROCHLORIDE) [Concomitant]
  3. FLOVENT [Concomitant]

REACTIONS (2)
  - LUPUS-LIKE SYNDROME [None]
  - SPLENOMEGALY [None]
